FAERS Safety Report 17432163 (Version 3)
Quarter: 2020Q2

REPORT INFORMATION
  Report Type: Spontaneous
  Country: US (occurrence: US)
  Receive Date: 20200218
  Receipt Date: 20200514
  Transmission Date: 20200713
  Serious: No
  Sender: FDA-Public Use
  Company Number: US-SA-2020SA037769

PATIENT
  Age: 47 Year
  Sex: Female

DRUGS (2)
  1. DUPIXENT [Suspect]
     Active Substance: DUPILUMAB
     Indication: DERMATITIS ATOPIC
     Dosage: 300 MG, QOW
     Route: 058
     Dates: start: 201912
  2. INSULIN [Concomitant]
     Active Substance: INSULIN NOS
     Indication: DIABETES MELLITUS
     Dosage: UNK UNK, QD
     Dates: start: 1988

REACTIONS (15)
  - Dry eye [Unknown]
  - Rhinorrhoea [Unknown]
  - Migraine [Unknown]
  - Eye irritation [Unknown]
  - Ocular hyperaemia [Unknown]
  - Hypersensitivity [Unknown]
  - Sneezing [Unknown]
  - Condition aggravated [Unknown]
  - Epistaxis [Unknown]
  - Asthma [Unknown]
  - Premenstrual syndrome [Unknown]
  - Skin disorder [Unknown]
  - Injection site rash [Unknown]
  - Injection site reaction [Recovered/Resolved]
  - Eye pruritus [Unknown]

NARRATIVE: CASE EVENT DATE: 202005
